FAERS Safety Report 7922340 (Version 2)
Quarter: 2013Q2

REPORT INFORMATION
  Report Type: Spontaneous
  Country: US (occurrence: US)
  Receive Date: 20110429
  Receipt Date: 20130614
  Transmission Date: 20140414
  Serious: No
  Sender: FDA-Public Use
  Company Number: US-ASTRAZENECA-2011SE05090

PATIENT
  Age: 53 Year
  Sex: Female
  Weight: 81.6 kg

DRUGS (2)
  1. NEXIUM [Suspect]
     Indication: DYSPEPSIA
     Route: 048
     Dates: start: 2010
  2. SYNTHROID [Concomitant]

REACTIONS (5)
  - Chest pain [Not Recovered/Not Resolved]
  - Dyspepsia [Unknown]
  - Sinusitis [Unknown]
  - Malaise [Unknown]
  - Drug dose omission [Unknown]
